FAERS Safety Report 11979786 (Version 2)
Quarter: 2016Q1

REPORT INFORMATION
  Report Type: Report from Study
  Country: BR (occurrence: BR)
  Receive Date: 20160129
  Receipt Date: 20160229
  Transmission Date: 20160526
  Serious: Yes (Death, Other)
  Sender: FDA-Public Use
  Company Number: PHHY2016BR011703

PATIENT
  Age: 58 Year
  Sex: Male
  Weight: 88 kg

DRUGS (1)
  1. DIOVAN AMLO FIX [Suspect]
     Active Substance: AMLODIPINE\VALSARTAN
     Indication: HYPERTENSION
     Dosage: 1 DF (AMLODIPINE 5 MG, VALSARTAN 320 MG), QD
     Route: 048
     Dates: end: 201511

REACTIONS (7)
  - Renal cancer [Recovered/Resolved]
  - Pulmonary fibrosis [Fatal]
  - Lung neoplasm malignant [Not Recovered/Not Resolved]
  - Prostate cancer [Recovered/Resolved]
  - Metastases to lung [Unknown]
  - Neoplasm malignant [Fatal]
  - Respiratory failure [Fatal]

NARRATIVE: CASE EVENT DATE: 2012
